FAERS Safety Report 18198631 (Version 2)
Quarter: 2020Q3

REPORT INFORMATION
  Report Type: Report from Study
  Country: None (occurrence: US)
  Receive Date: 20200826
  Receipt Date: 20200828
  Transmission Date: 20201103
  Serious: Yes (Other)
  Sender: FDA-Public Use
  Company Number: US-ABBVIE-20K-163-3439737-00

PATIENT
  Age: 76 Year
  Sex: Female
  Weight: 76.73 kg

DRUGS (5)
  1. SYNTHROID [Concomitant]
     Active Substance: LEVOTHYROXINE SODIUM
     Indication: THYROID CANCER
  2. HUMIRA [Suspect]
     Active Substance: ADALIMUMAB
     Indication: CROHN^S DISEASE
     Dosage: CITRATE FREE
     Route: 058
  3. HUMIRA [Suspect]
     Active Substance: ADALIMUMAB
     Indication: COLITIS ULCERATIVE
     Route: 058
  4. SERTRALINE [Concomitant]
     Active Substance: SERTRALINE HYDROCHLORIDE
     Indication: DEPRESSION
  5. SYNTHROID [Concomitant]
     Active Substance: LEVOTHYROXINE SODIUM
     Indication: THYROIDECTOMY

REACTIONS (7)
  - Rectal haemorrhage [Recovered/Resolved]
  - Abdominal hernia [Recovering/Resolving]
  - Stoma site haemorrhage [Recovered/Resolved]
  - Diarrhoea [Unknown]
  - Device issue [Unknown]
  - Stoma creation [Unknown]
  - Abdominal pain [Unknown]

NARRATIVE: CASE EVENT DATE: 202005
